FAERS Safety Report 6409432-3 (Version None)
Quarter: 2009Q4

REPORT INFORMATION
  Report Type: 
  Country: None (occurrence: None)
  Receive Date: 20091019
  Receipt Date: 20091019
  Transmission Date: 20100525
  Serious: No
  Sender: FDA-Public Use
  Company Number: None

PATIENT
  Sex: Female
  Weight: 105.2345 kg

DRUGS (1)
  1. SEROQUEL [Suspect]
     Indication: SLEEP DISORDER
     Dosage: 200 MG 1 PER DIEM PO
     Route: 048
     Dates: start: 20020301, end: 20050501

REACTIONS (12)
  - DEPRESSED LEVEL OF CONSCIOUSNESS [None]
  - DIABETES MELLITUS [None]
  - DIABETIC KETOACIDOSIS [None]
  - DRUG INEFFECTIVE [None]
  - DRY MOUTH [None]
  - FEELING ABNORMAL [None]
  - HYPERPHAGIA [None]
  - INSULIN RESISTANCE [None]
  - PANCREATIC DISORDER [None]
  - SOMNAMBULISM [None]
  - STARVATION [None]
  - WEIGHT INCREASED [None]
